FAERS Safety Report 8644127 (Version 2)
Quarter: 2012Q4

REPORT INFORMATION
  Report Type: Report from Study
  Country: JP (occurrence: JP)
  Receive Date: 20120629
  Receipt Date: 20120906
  Transmission Date: 20130627
  Serious: Yes (Disabling, Other)
  Sender: FDA-Public Use
  Company Number: JP-PFIZER INC-2012155591

PATIENT
  Age: 84 Year
  Sex: Male

DRUGS (6)
  1. ESTRACYT [Suspect]
     Indication: PROSTATE CANCER
     Dosage: 313.4 mg/day
     Route: 048
     Dates: start: 20110308, end: 20111111
  2. ESTRACYT [Suspect]
     Dosage: UNK
     Route: 048
     Dates: start: 20111112, end: 20111209
  3. OPALMON [Concomitant]
     Dosage: UNK
     Dates: start: 20110308
  4. URIEF [Concomitant]
     Dosage: UNK
     Dates: start: 20110308
  5. DUROTEP [Concomitant]
     Dosage: UNK
     Dates: start: 20110308
  6. BUFFERIN [Concomitant]
     Dosage: 81 mg, UNK
     Dates: start: 20110308, end: 20111209

REACTIONS (1)
  - Pancytopenia [Not Recovered/Not Resolved]
